FAERS Safety Report 5906848-6 (Version None)
Quarter: 2008Q3

REPORT INFORMATION
  Report Type: 
  Country: None (occurrence: None)
  Receive Date: 20080929
  Receipt Date: 20080922
  Transmission Date: 20090109
  Serious: Yes (Hospitalization)
  Sender: FDA-Public Use
  Company Number: CERZ-1000372

PATIENT
  Age: 2 Year
  Sex: Female
  Weight: 11.4 kg

DRUGS (5)
  1. CEREZYME [Suspect]
     Indication: GAUCHER'S DISEASE
     Dosage: 800 U, QW, INTRAVENOUS; 600SEE IMAGE
     Route: 042
     Dates: start: 20080305, end: 20080320
  2. CEREZYME [Suspect]
     Indication: GAUCHER'S DISEASE
     Dosage: 800 U, QW, INTRAVENOUS; 600SEE IMAGE
     Route: 042
     Dates: start: 20080403, end: 20080529
  3. CEREZYME [Suspect]
     Indication: GAUCHER'S DISEASE
     Dosage: 800 U, QW, INTRAVENOUS; 600SEE IMAGE
     Route: 042
     Dates: start: 20080529, end: 20080611
  4. CEREZYME [Suspect]
     Indication: GAUCHER'S DISEASE
     Dosage: 800 U, QW, INTRAVENOUS; 600SEE IMAGE
     Route: 042
     Dates: start: 20080611
  5. MULTI-VIT (VITAMINS NOS) [Concomitant]

REACTIONS (9)
  - CENTRAL LINE INFECTION [None]
  - FATIGUE [None]
  - HAEMOGLOBIN DECREASED [None]
  - IRRITABILITY [None]
  - LIVEDO RETICULARIS [None]
  - PLATELET COUNT DECREASED [None]
  - PNEUMONIA [None]
  - REACTIVE ATTACHMENT DISORDER OF INFANCY OR EARLY CHILDHOOD [None]
  - STAPHYLOCOCCAL INFECTION [None]
